FAERS Safety Report 18200491 (Version 1)
Quarter: 2020Q3

REPORT INFORMATION
  Report Type: Spontaneous
  Country: DE (occurrence: DE)
  Receive Date: 20200826
  Receipt Date: 20200826
  Transmission Date: 20201103
  Serious: Yes (Hospitalization)
  Sender: FDA-Public Use
  Company Number: DE-009507513-2008DEU011909

PATIENT
  Age: 83 Year
  Sex: Male

DRUGS (12)
  1. PANTOPRAZOLE [Concomitant]
     Active Substance: PANTOPRAZOLE
     Dosage: 20 MG, 1?0?0?0, TABLETS
     Route: 048
  2. ASPIRIN. [Suspect]
     Active Substance: ASPIRIN
     Dosage: 100 MG, 0?1?0?0, TABLETS
     Route: 048
  3. GLYCOPYRROLATE (+) INDACATEROL MALEATE [Concomitant]
     Active Substance: GLYCOPYRROLATE\INDACATEROL MALEATE
     Dosage: 43/85 ?G, 1?0?0?0
  4. SITAGLIPTIN PHOSPHATE (+) METFORMIN HYDROCHLORIDE [Suspect]
     Active Substance: METFORMIN HYDROCHLORIDE\SITAGLIPTIN PHOSPHATE
     Dosage: 1000/50 MG, 1?0?1?0, TABLETS
     Route: 048
  5. FENOFIBRATE. [Suspect]
     Active Substance: FENOFIBRATE
     Dosage: 200 MG, 1?0?1?0, CAPSULES
     Route: 048
  6. ENTRESTO [Suspect]
     Active Substance: SACUBITRIL\VALSARTAN
     Dosage: TABLETS
     Route: 048
  7. SPIRONOLACTONE. [Suspect]
     Active Substance: SPIRONOLACTONE
     Dosage: 100 MG, 1?0?0?0, TABLETS
     Route: 048
  8. SITAGLIPTIN PHOSPHATE [Suspect]
     Active Substance: SITAGLIPTIN PHOSPHATE
     Dosage: 50 MG, 1?0?0?0, TABLETS
     Route: 048
  9. INSULIN LISPRO [Concomitant]
     Active Substance: INSULIN LISPRO
     Dosage: BY VALUE
     Route: 058
  10. TORSEMIDE. [Suspect]
     Active Substance: TORSEMIDE
     Dosage: 50 MG, 1?0?0?0, TABLETS
     Route: 048
  11. ALLOPURINOL. [Suspect]
     Active Substance: ALLOPURINOL
     Dosage: 100 MG, 1?0?0?0, TABLETS
     Route: 048
  12. BISOPROLOL [Suspect]
     Active Substance: BISOPROLOL
     Dosage: 2.5 MG, 0?0?1?0, TABLETS
     Route: 048

REACTIONS (4)
  - Cough [Unknown]
  - General physical health deterioration [Unknown]
  - Weight increased [Unknown]
  - Oedema peripheral [Unknown]
